FAERS Safety Report 26180883 (Version 1)
Quarter: 2025Q4

REPORT INFORMATION
  Report Type: Spontaneous
  Country: US (occurrence: US)
  Receive Date: 20251221
  Receipt Date: 20251221
  Transmission Date: 20260118
  Serious: Yes (Death, Other)
  Sender: CSL BEHRING
  Company Number: US-BEH-2025229558

PATIENT
  Age: 77 Year
  Sex: Female
  Weight: 89.2 kg

DRUGS (1)
  1. MIRCERA [Suspect]
     Active Substance: METHOXY POLYETHYLENE GLYCOL-EPOETIN BETA
     Indication: Nephrogenic anaemia
     Dosage: 30 ?G, QMT
     Route: 040
     Dates: start: 20250612, end: 20250612

REACTIONS (3)
  - Dyspnoea [Fatal]
  - Unresponsive to stimuli [Fatal]
  - Heart rate increased [Fatal]

NARRATIVE: CASE EVENT DATE: 20251206
